FAERS Safety Report 19440902 (Version 1)
Quarter: 2021Q2

REPORT INFORMATION
  Report Type: Report from Study
  Country: None (occurrence: CO)
  Receive Date: 20210621
  Receipt Date: 20210621
  Transmission Date: 20210717
  Serious: Yes (Disabling, Other)
  Sender: FDA-Public Use
  Company Number: CO-ABBVIE-21K-036-3959027-00

PATIENT
  Age: 45 Year
  Sex: Female
  Weight: 57 kg

DRUGS (1)
  1. HUMIRA [Suspect]
     Active Substance: ADALIMUMAB
     Indication: CROHN^S DISEASE
     Route: 058
     Dates: start: 20181128, end: 20210504

REACTIONS (3)
  - Haemorrhage [Recovering/Resolving]
  - Proctalgia [Recovering/Resolving]
  - Anal fistula [Recovering/Resolving]

NARRATIVE: CASE EVENT DATE: 202104
